FAERS Safety Report 18954766 (Version 1)
Quarter: 2021Q1

REPORT INFORMATION
  Report Type: Spontaneous
  Country: JP (occurrence: TJ)
  Receive Date: 20210301
  Receipt Date: 20210301
  Transmission Date: 20210420
  Serious: Yes (Other)
  Sender: FDA-Public Use
  Company Number: TJ-STI PHARMA LLC-2107443

PATIENT
  Age: 8 Year
  Sex: Female
  Weight: 23 kg

DRUGS (4)
  1. DELAMINID [Suspect]
     Active Substance: DELAMANID
     Dates: start: 20200821
  2. ETHAMBUTOL HYDROCHLORIDE. [Suspect]
     Active Substance: ETHAMBUTOL HYDROCHLORIDE
     Indication: TUBERCULOSIS
     Dates: start: 20200821, end: 20201229
  3. BEDAQUILINE [Concomitant]
     Active Substance: BEDAQUILINE
     Dates: start: 20200821
  4. CLOFAZIMINE [Suspect]
     Active Substance: CLOFAZIMINE
     Dates: start: 20200821, end: 20201123

REACTIONS (6)
  - Alanine aminotransferase increased [Recovered/Resolved]
  - Aspartate aminotransferase increased [Recovered/Resolved]
  - Rash vesicular [Unknown]
  - Product use issue [Unknown]
  - Rash [Recovering/Resolving]
  - Pruritus [Recovering/Resolving]
